FAERS Safety Report 6201296-6 (Version None)
Quarter: 2009Q2

REPORT INFORMATION
  Report Type: 
  Country: None (occurrence: None)
  Receive Date: 20090519
  Receipt Date: 20090504
  Transmission Date: 20091009
  Serious: Yes (Hospitalization)
  Sender: FDA-Public Use
  Company Number: 2009S1007754

PATIENT
  Age: 49 Year
  Sex: Male

DRUGS (7)
  1. CLARITHROMYCIN [Suspect]
     Indication: MYCOBACTERIUM MARINUM INFECTION
     Dosage: 500 MG;TWICE A DAY
  2. DOXYCYCLINE [Suspect]
     Indication: MYCOBACTERIUM MARINUM INFECTION
     Dosage: 100 MG;TWICE A DAY
  3. ETHAMBUTOL (ETAMBUTOL) [Suspect]
     Dosage: 1200 MG;4 TIMES A DAY
  4. RIFAMPICIN [Suspect]
     Indication: MYCOBACTERIUM MARINUM INFECTION
     Dosage: 600 MG
  5. METHOTREXATE [Concomitant]
  6. INFLIXIMAB [Concomitant]
  7. PREDNISOLONE [Concomitant]

REACTIONS (7)
  - ANOREXIA [None]
  - CONFUSIONAL STATE [None]
  - HAEMODIALYSIS [None]
  - HYPERCALCAEMIA [None]
  - NAUSEA [None]
  - RENAL FAILURE [None]
  - VOMITING [None]
